FAERS Safety Report 21263448 (Version 1)
Quarter: 2022Q3

REPORT INFORMATION
  Report Type: Other
  Country: None (occurrence: US)
  Receive Date: 20220829
  Receipt Date: 20220829
  Transmission Date: 20221026
  Serious: Yes (Hospitalization, Other)
  Sender: FDA-Public Use
  Company Number: US-Appco Pharma LLC-2132316

PATIENT
  Age: 36 Year
  Sex: Female

DRUGS (3)
  1. FLUOXETINE [Suspect]
     Active Substance: FLUOXETINE HYDROCHLORIDE
     Indication: Depression
     Route: 065
  2. LORAZEPAM [Suspect]
     Active Substance: LORAZEPAM
     Route: 065
  3. ARIPIPRAZOLE [Suspect]
     Active Substance: ARIPIPRAZOLE
     Route: 065

REACTIONS (3)
  - Drug ineffective [Unknown]
  - Hypokalaemia [Unknown]
  - Hepatic function abnormal [Unknown]
